FAERS Safety Report 23525973 (Version 1)
Quarter: 2024Q1

REPORT INFORMATION
  Report Type: Report from Study
  Country: US (occurrence: US)
  Receive Date: 20240215
  Receipt Date: 20240215
  Transmission Date: 20240409
  Serious: Yes (Other)
  Sender: FDA-Public Use
  Company Number: US-MYLANLABS-2023M1065958

PATIENT
  Sex: Female
  Weight: 79.37 kg

DRUGS (3)
  1. GLATIRAMER ACETATE [Suspect]
     Active Substance: GLATIRAMER ACETATE
     Indication: Relapsing-remitting multiple sclerosis
     Dosage: 40 MILLIGRAM, 3XW
     Route: 058
     Dates: end: 202312
  2. GLATIRAMER ACETATE [Suspect]
     Active Substance: GLATIRAMER ACETATE
     Indication: Multiple sclerosis
     Dosage: 40 MILLIGRAM, 3XW
     Route: 058
     Dates: end: 202312
  3. GLATIRAMER ACETATE [Suspect]
     Active Substance: GLATIRAMER ACETATE
     Dosage: UNK
     Route: 058

REACTIONS (15)
  - Multiple sclerosis relapse [Unknown]
  - General physical health deterioration [Unknown]
  - Visual impairment [Unknown]
  - Speech disorder [Unknown]
  - Injection site pruritus [Not Recovered/Not Resolved]
  - Injection site pain [Not Recovered/Not Resolved]
  - Injection site swelling [Not Recovered/Not Resolved]
  - Injection site nodule [Unknown]
  - Drug effect less than expected [Unknown]
  - Urticaria [Unknown]
  - Coordination abnormal [Unknown]
  - Dysphonia [Unknown]
  - Fall [Unknown]
  - Human chorionic gonadotropin abnormal [Unknown]
  - Maternal exposure during pregnancy [Unknown]
